FAERS Safety Report 6092207-5 (Version None)
Quarter: 2009Q1

REPORT INFORMATION
  Report Type: 
  Country: None (occurrence: None)
  Receive Date: 20090225
  Receipt Date: 20090219
  Transmission Date: 20090719
  Serious: Yes (Hospitalization)
  Sender: FDA-Public Use
  Company Number: US-WYE-H05641808

PATIENT
  Sex: Male
  Weight: 59.02 kg

DRUGS (5)
  1. TYGACIL [Suspect]
     Indication: PNEUMONIA STAPHYLOCOCCAL
     Route: 042
     Dates: start: 20080801
  2. TYGACIL [Suspect]
     Indication: SEPSIS
  3. TYGACIL [Suspect]
     Indication: EMPYEMA
  4. LEVAQUIN [Concomitant]
     Dosage: UNKNOWN
  5. ZOSYN [Concomitant]

REACTIONS (1)
  - HERPES VIRUS INFECTION [None]
